FAERS Safety Report 17407508 (Version 1)
Quarter: 2020Q1

REPORT INFORMATION
  Report Type: Spontaneous
  Country: US (occurrence: US)
  Receive Date: 20200212
  Receipt Date: 20200212
  Transmission Date: 20200409
  Serious: No
  Sender: FDA-Public Use
  Company Number: US-JNJFOC-20200207931

PATIENT
  Age: 95 Year
  Sex: Female
  Weight: 72.64 kg

DRUGS (7)
  1. STATIN                             /00036501/ [Concomitant]
     Active Substance: NYSTATIN
  2. RISPERDAL [Suspect]
     Active Substance: RISPERIDONE
     Indication: AGITATION
     Route: 048
     Dates: start: 20200122
  3. LANTUS [Concomitant]
     Active Substance: INSULIN GLARGINE
  4. MIRALAX [Concomitant]
     Active Substance: POLYETHYLENE GLYCOL 3350
     Dosage: EVERY MORNING
  5. JANUVIA [Concomitant]
     Active Substance: SITAGLIPTIN PHOSPHATE
  6. PINDOLOL. [Concomitant]
     Active Substance: PINDOLOL
  7. GLIPIZIDE. [Concomitant]
     Active Substance: GLIPIZIDE

REACTIONS (5)
  - Muscle rigidity [Not Recovered/Not Resolved]
  - Fear [Not Recovered/Not Resolved]
  - Dyspnoea [Not Recovered/Not Resolved]
  - Freezing phenomenon [Not Recovered/Not Resolved]
  - Tremor [Not Recovered/Not Resolved]

NARRATIVE: CASE EVENT DATE: 20200204
